FAERS Safety Report 8366165-4 (Version None)
Quarter: 2012Q2

REPORT INFORMATION
  Report Type: 
  Country: None (occurrence: None)
  Receive Date: 20120517
  Receipt Date: 20120511
  Transmission Date: 20120825
  Serious: Yes (Other)
  Sender: FDA-Public Use
  Company Number: US-PFIZER INC-2012045404

PATIENT
  Sex: Female

DRUGS (1)
  1. CHANTIX [Suspect]
     Indication: SMOKING CESSATION THERAPY
     Dosage: UNK
     Dates: start: 20090301, end: 20090401

REACTIONS (8)
  - HOMICIDAL IDEATION [None]
  - ANXIETY [None]
  - PANIC ATTACK [None]
  - AGGRESSION [None]
  - ANGER [None]
  - SUICIDAL BEHAVIOUR [None]
  - DEPRESSION [None]
  - INSOMNIA [None]
